FAERS Safety Report 4302009-5 (Version None)
Quarter: 2004Q1

REPORT INFORMATION
  Report Type: 
  Country: None (occurrence: None)
  Receive Date: 20040220
  Receipt Date: 20040206
  Transmission Date: 20041129
  Serious: Yes (Life-Threatening, Other)
  Sender: FDA-Public Use
  Company Number: 2004008301

PATIENT
  Age: 64 Year
  Sex: Male
  Weight: 92.8 kg

DRUGS (30)
  1. SORTIS (ATROVASTATIN) [Suspect]
     Indication: HYPERLIPIDAEMIA
     Dosage: 20 MG (DAILY) ORAL
     Route: 048
     Dates: start: 20030416
  2. PROPOFOL [Suspect]
     Indication: ILL-DEFINED DISORDER
  3. AMIODARONE HCL [Suspect]
     Indication: ILL-DEFINED DISORDER
  4. MIDAZOLAM HCL [Suspect]
     Indication: ILL-DEFINED DISORDER
  5. SIMVASTATIN [Concomitant]
  6. SUFENTANIL CITRATE [Concomitant]
  7. ESOMEPRAZOLE (ESOMEPRAZOLE) [Concomitant]
  8. PIRITRAMIDE [Concomitant]
  9. LOSARTAN (LOSARTAN) [Concomitant]
  10. DEXAMETHASONE [Concomitant]
  11. AMLODIPINE [Concomitant]
  12. ETOMIDATE (ETOMIDATE) [Concomitant]
  13. PANCURONIUM BROMIDE [Concomitant]
  14. CEFOTIAM (CEFOTIAM) [Concomitant]
  15. ENOXAPARIN SODIUM [Concomitant]
  16. FUROSEMIDE [Concomitant]
  17. ENOXIMONE (ENOXIMONE) [Concomitant]
  18. PIPERACILLIN [Concomitant]
  19. TAZOBACTAM [Concomitant]
  20. METOCLOPRAMIDE [Concomitant]
  21. URAPIDIL (URAPIDIL) [Concomitant]
  22. TORSEMIDE [Concomitant]
  23. PHENPROCOUMON (PHENPROCOUMON) [Concomitant]
  24. PARACETAMOL (PARACETAMOL) [Concomitant]
  25. DOPAMINE HCL [Concomitant]
  26. EPINEPHRINE [Concomitant]
  27. NOREPINEPHRINE (NOREPINEPHRINE) [Concomitant]
  28. GLYERYL TRINITRATE (GLYCERAL TRINITRATE) [Concomitant]
  29. ACETYLCYSTEINE [Concomitant]
  30. DICLOFENAC SODIUM [Concomitant]

REACTIONS (5)
  - BRADYARRHYTHMIA [None]
  - DRUG INTERACTION [None]
  - HAEMODIALYSIS [None]
  - RENAL FAILURE [None]
  - RHABDOMYOLYSIS [None]
